FAERS Safety Report 8341653-5 (Version None)
Quarter: 2012Q2

REPORT INFORMATION
  Report Type: 
  Country: None (occurrence: None)
  Receive Date: 20120507
  Receipt Date: 20120502
  Transmission Date: 20120825
  Serious: Yes (Other)
  Sender: FDA-Public Use
  Company Number: HU-PFIZER INC-2012098320

PATIENT
  Age: 9 Year
  Sex: Female

DRUGS (1)
  1. METHYLPREDNISOLONE [Suspect]
     Indication: ADRENAL INSUFFICIENCY
     Dosage: 1 DAY OF TREATMENT

REACTIONS (6)
  - SYMPTOM MASKED [None]
  - GENERALISED OEDEMA [None]
  - NOSOCOMIAL INFECTION [None]
  - CANDIDA PNEUMONIA [None]
  - LUNG INFECTION PSEUDOMONAL [None]
  - SEPSIS [None]
